FAERS Safety Report 6159086-9 (Version None)
Quarter: 2009Q2

REPORT INFORMATION
  Report Type: 
  Country: None (occurrence: None)
  Receive Date: 20090417
  Receipt Date: 20090414
  Transmission Date: 20091009
  Serious: Yes (Life-Threatening, Other)
  Sender: FDA-Public Use
  Company Number: PHHY2009ES13979

PATIENT
  Age: 31 Year
  Sex: Female

DRUGS (4)
  1. OCTREOTIDE ACETATE [Suspect]
     Indication: PITUITARY TUMOUR
     Dosage: 30 MG/ 28 DAYS
  2. OCTREOTIDE ACETATE [Suspect]
     Dosage: 30 MG/ 28 DAYS
  3. PEGVISOMANT [Suspect]
     Dosage: 10 MG/DAY
  4. CABERGOLINE [Concomitant]
     Dosage: 0.5 MG/WEEK

REACTIONS (5)
  - DRUG INEFFECTIVE [None]
  - HYPERTRANSAMINASAEMIA [None]
  - HYPONATRAEMIA [None]
  - HYPOPITUITARISM [None]
  - PITUITARY TUMOUR REMOVAL [None]
